FAERS Safety Report 10215785 (Version 2)
Quarter: 2014Q2

REPORT INFORMATION
  Report Type: Report from Study
  Country: AU (occurrence: AU)
  Receive Date: 20140604
  Receipt Date: 20140604
  Transmission Date: 20141212
  Serious: Yes (Hospitalization, Other)
  Sender: FDA-Public Use
  Company Number: PHHY2014AU056787

PATIENT
  Age: 51 Year
  Sex: Male

DRUGS (9)
  1. CLOZARIL [Suspect]
     Indication: SCHIZOAFFECTIVE DISORDER
     Dosage: 700 MG PER DAY
     Route: 048
     Dates: start: 20090507
  2. OLANZAPINE [Concomitant]
     Dosage: 5 MG, BID
     Route: 048
  3. RIVAROXABAN [Concomitant]
     Dosage: 20 MG DAILY
     Route: 048
  4. PERINDOPRIL ARGININE [Concomitant]
     Dosage: 2.5 MG, MANE
     Route: 048
  5. GEMFIBROZIL [Concomitant]
     Dosage: 600 MG, BID
     Route: 048
  6. GLICLAZIDE [Concomitant]
     Dosage: 60 MG, MANE
     Route: 048
  7. METFORMIN [Concomitant]
     Dosage: 1 G, BID
     Route: 048
  8. PANTOPRAZOLE [Concomitant]
     Dosage: 40 MG, MANE
     Route: 048
  9. ATORVASTATIN [Concomitant]
     Dosage: 40 MG NOCTE
     Route: 048

REACTIONS (13)
  - Atrial flutter [Recovering/Resolving]
  - Myocarditis [Recovering/Resolving]
  - Sinus tachycardia [Recovered/Resolved]
  - Dyspnoea [Unknown]
  - Exercise tolerance decreased [Unknown]
  - Left ventricular dysfunction [Unknown]
  - Ejection fraction decreased [Unknown]
  - Ventricular hypokinesia [Unknown]
  - Mitral valve incompetence [Unknown]
  - Tricuspid valve incompetence [Unknown]
  - Pulmonary valve incompetence [Unknown]
  - Troponin T increased [Unknown]
  - Antipsychotic drug level increased [Recovered/Resolved]
